FAERS Safety Report 14009912 (Version 1)
Quarter: 2017Q3

REPORT INFORMATION
  Report Type: Spontaneous
  Country: AU (occurrence: AU)
  Receive Date: 20170925
  Receipt Date: 20170925
  Transmission Date: 20171128
  Serious: Yes (Hospitalization, Other)
  Sender: FDA-Public Use
  Company Number: AU-MYLANLABS-2017M1057295

PATIENT
  Age: 22 Year
  Sex: Male

DRUGS (1)
  1. VALPRO [Suspect]
     Active Substance: VALPROATE SODIUM
     Indication: PRODUCT USED FOR UNKNOWN INDICATION

REACTIONS (2)
  - Drug level below therapeutic [Unknown]
  - Seizure [Unknown]

NARRATIVE: CASE EVENT DATE: 20170912
